FAERS Safety Report 8251415-5 (Version None)
Quarter: 2012Q2

REPORT INFORMATION
  Report Type: 
  Country: None (occurrence: None)
  Receive Date: 20120402
  Receipt Date: 20120329
  Transmission Date: 20120825
  Serious: Yes (Other)
  Sender: FDA-Public Use
  Company Number: NZ-PFIZER INC-2012037369

PATIENT
  Age: 17 Year
  Sex: Male
  Weight: 56 kg

DRUGS (1)
  1. VARENICLINE TARTRATE [Suspect]
     Indication: SMOKING CESSATION THERAPY
     Dosage: 1 MG, 2X/DAY
     Route: 048
     Dates: start: 20120127, end: 20120209

REACTIONS (3)
  - MOOD ALTERED [None]
  - CRYING [None]
  - EMOTIONAL DISORDER [None]
